FAERS Safety Report 8244302-X (Version None)
Quarter: 2012Q1

REPORT INFORMATION
  Report Type: 
  Country: None (occurrence: None)
  Receive Date: 20120309
  Receipt Date: 20100106
  Transmission Date: 20120608
  Serious: Yes (Other)
  Sender: FDA-Public Use
  Company Number: PHEH2009US18619

PATIENT
  Age: 39 Year
  Sex: Female

DRUGS (6)
  1. EXTAVIA [Suspect]
     Indication: MULTIPLE SCLEROSIS
     Dosage: 0.0625 MG, QOD, SUBCUTANEOUS : 0.125 MG, QOD, SUBCUTANEOUS
     Route: 058
     Dates: start: 20091201
  2. EXTAVIA [Suspect]
     Indication: MULTIPLE SCLEROSIS
     Dosage: 0.0625 MG, QOD, SUBCUTANEOUS : 0.125 MG, QOD, SUBCUTANEOUS
     Route: 058
     Dates: start: 20091222
  3. EFFEXOR [Concomitant]
  4. UROQID-ACID (METHENAMINE MANDELATE, SODIUM PHOSPHATE MONOBASIC (MONOHY [Concomitant]
  5. FLOMAX [Concomitant]
  6. BACLOFEN [Concomitant]

REACTIONS (7)
  - DEPRESSION [None]
  - PAIN [None]
  - FATIGUE [None]
  - INFLUENZA LIKE ILLNESS [None]
  - NAUSEA [None]
  - HEADACHE [None]
  - MOTION SICKNESS [None]
